FAERS Safety Report 25037942 (Version 2)
Quarter: 2025Q1

REPORT INFORMATION
  Report Type: Spontaneous
  Country: JP (occurrence: JP)
  Receive Date: 20250304
  Receipt Date: 20250314
  Transmission Date: 20250409
  Serious: Yes (Hospitalization)
  Sender: TEVA
  Company Number: JP-TEVA-VS-3303618

PATIENT
  Age: 69 Year
  Sex: Male

DRUGS (12)
  1. BENDAMUSTINE [Suspect]
     Active Substance: BENDAMUSTINE
     Indication: Follicular lymphoma stage IV
     Route: 065
     Dates: start: 202011
  2. BENDAMUSTINE [Suspect]
     Active Substance: BENDAMUSTINE
     Indication: Follicular lymphoma stage IV
     Route: 065
     Dates: start: 2018
  3. BENDAMUSTINE [Suspect]
     Active Substance: BENDAMUSTINE
     Indication: Follicular lymphoma stage IV
     Route: 065
     Dates: start: 201911
  4. DOXORUBICIN [Suspect]
     Active Substance: DOXORUBICIN
     Indication: Follicular lymphoma stage IV
     Route: 065
     Dates: start: 201810
  5. VINCRISTINE [Suspect]
     Active Substance: VINCRISTINE
     Indication: Follicular lymphoma stage IV
     Route: 065
     Dates: start: 201810
  6. OBINUTUZUMAB [Suspect]
     Active Substance: OBINUTUZUMAB
     Indication: Follicular lymphoma stage III
     Route: 065
     Dates: start: 202011
  7. RITUXIMAB [Suspect]
     Active Substance: RITUXIMAB
     Indication: Follicular lymphoma stage IV
     Route: 065
     Dates: start: 201810
  8. RITUXIMAB [Suspect]
     Active Substance: RITUXIMAB
     Indication: Follicular lymphoma stage IV
     Route: 065
     Dates: start: 201911
  9. RITUXIMAB [Suspect]
     Active Substance: RITUXIMAB
     Indication: Follicular lymphoma stage IV
     Route: 065
     Dates: start: 2018
  10. RITUXIMAB [Suspect]
     Active Substance: RITUXIMAB
     Indication: Follicular lymphoma stage IV
     Route: 065
  11. CYCLOPHOSPHAMIDE [Suspect]
     Active Substance: CYCLOPHOSPHAMIDE
     Indication: Follicular lymphoma stage IV
     Route: 065
     Dates: start: 201810
  12. PREDNISOLONE [Suspect]
     Active Substance: PREDNISOLONE
     Indication: Follicular lymphoma stage IV
     Route: 065
     Dates: start: 201810

REACTIONS (3)
  - Cytomegalovirus enteritis [Recovering/Resolving]
  - Primary adrenal insufficiency [Recovering/Resolving]
  - Rash [Unknown]
